FAERS Safety Report 8406129-5 (Version None)
Quarter: 2012Q2

REPORT INFORMATION
  Report Type: 
  Country: None (occurrence: None)
  Receive Date: 20120323
  Receipt Date: 20110107
  Transmission Date: 20120825
  Serious: Yes (Hospitalization)
  Sender: FDA-Public Use
  Company Number: 163-21880-11010887

PATIENT
  Age: 67 Year
  Sex: Female
  Weight: 81.5 kg

DRUGS (2)
  1. REVLIMID [Suspect]
     Indication: MULTIPLE MYELOMA
     Dosage: 15 MG, DAYS 1-14 EVERY 3 WEEKS, PO
     Route: 048
     Dates: start: 20100916
  2. ANTIBIOTICS (ANTIBIOTICS) (UNKNOWN) [Suspect]
     Indication: CELLULITIS
     Dosage: UNK

REACTIONS (1)
  - DIARRHOEA [None]
